FAERS Safety Report 5235682-8 (Version None)
Quarter: 2007Q1

REPORT INFORMATION
  Report Type: 
  Country: None (occurrence: None)
  Receive Date: 20061208
  Receipt Date: 20060714
  Transmission Date: 20070707
  Serious: Yes (Other)
  Sender: FDA-Public Use
  Company Number: 2006UW14458

PATIENT
  Age: 84 Year
  Sex: Female
  Weight: 52.163 kg

DRUGS (11)
  1. CRESTOR [Suspect]
     Indication: HYPERCHOLESTEROLAEMIA
     Dosage: 10 MG QD PO
     Route: 048
  2. PREDNISONE [Concomitant]
  3. ALPHAGAN [Concomitant]
  4. PROTONIX [Concomitant]
  5. ISOSORB [Concomitant]
  6. DIGOXIN [Concomitant]
  7. LEVOXYL [Concomitant]
  8. ATENOLOL [Concomitant]
  9. AVAPRO [Concomitant]
  10. NORVASC [Concomitant]
  11. FOLIC ACID [Concomitant]

REACTIONS (4)
  - HOT FLUSH [None]
  - JOINT SWELLING [None]
  - OEDEMA PERIPHERAL [None]
  - PALPITATIONS [None]
